FAERS Safety Report 9084007 (Version 1)
Quarter: 2013Q1

REPORT INFORMATION
  Report Type: Spontaneous
  Country: US (occurrence: US)
  Receive Date: 20130130
  Receipt Date: 20130130
  Transmission Date: 20140127
  Serious: No
  Sender: FDA-Public Use
  Company Number: US-ASTRAZENECA-2013SE02461

PATIENT
  Age: 54 Year
  Sex: Female
  Weight: 58.5 kg

DRUGS (7)
  1. NEXIUM [Suspect]
     Indication: GASTROOESOPHAGEAL REFLUX DISEASE
     Route: 048
     Dates: start: 2010
  2. NEXIUM [Suspect]
     Indication: GASTROOESOPHAGEAL REFLUX DISEASE
     Dosage: HALF AN HOUR BEFORE MEALS
     Route: 048
  3. ESTROGEN [Concomitant]
  4. NASONEX [Concomitant]
  5. CITRACAL [Concomitant]
  6. GLUCOSAMINE CHONDROITIN [Concomitant]
  7. MULTIVITAMIN [Concomitant]

REACTIONS (3)
  - Dyspepsia [Not Recovered/Not Resolved]
  - Asthma [Not Recovered/Not Resolved]
  - Off label use [Not Recovered/Not Resolved]
